FAERS Safety Report 20542221 (Version 1)
Quarter: 2022Q1

REPORT INFORMATION
  Report Type: Spontaneous
  Country: US (occurrence: None)
  Receive Date: 20220302
  Receipt Date: 20220302
  Transmission Date: 20220423
  Serious: Yes (Other)
  Sender: FDA-Public Use
  Company Number: 2022A083971

PATIENT
  Sex: Female
  Weight: 61.2 kg

DRUGS (1)
  1. FARXIGA [Suspect]
     Active Substance: DAPAGLIFLOZIN PROPANEDIOL
     Indication: Type 2 diabetes mellitus
     Route: 048
     Dates: start: 20211212

REACTIONS (4)
  - Neoplasm malignant [Unknown]
  - Rhinorrhoea [Unknown]
  - Illness [Unknown]
  - Chronic obstructive pulmonary disease [Unknown]
